FAERS Safety Report 5349581-4 (Version None)
Quarter: 2007Q2

REPORT INFORMATION
  Report Type: 
  Country: None (occurrence: None)
  Receive Date: 20070607
  Receipt Date: 20070530
  Transmission Date: 20071010
  Serious: Yes (Hospitalization)
  Sender: FDA-Public Use
  Company Number: FR-ELI_LILLY_AND_COMPANY-FR200705007641

PATIENT
  Age: 76 Year
  Sex: Female

DRUGS (2)
  1. FORTEO [Suspect]
     Indication: OSTEOPOROSIS
     Dosage: 20 UG, DAILY (1/D)
     Route: 058
     Dates: start: 20070214, end: 20070528
  2. DURAGESIC-100 [Concomitant]
     Dosage: 50 MG, UNK
     Route: 062

REACTIONS (5)
  - ANOREXIA [None]
  - CEREBROVASCULAR ACCIDENT [None]
  - FATIGUE [None]
  - HEMIPLEGIA [None]
  - HYPERCALCAEMIA [None]
